FAERS Safety Report 25454837 (Version 1)
Quarter: 2025Q2

REPORT INFORMATION
  Report Type: Other
  Country: GB (occurrence: GB)
  Receive Date: 20250619
  Receipt Date: 20250619
  Transmission Date: 20250716
  Serious: Yes (Other)
  Sender: MACLEODS
  Company Number: GB-MACLEODS PHARMA-MAC2025053499

PATIENT

DRUGS (2)
  1. EMTRICITABINE\TENOFOVIR DISOPROXIL FUMARATE [Suspect]
     Active Substance: EMTRICITABINE\TENOFOVIR DISOPROXIL FUMARATE
     Indication: HIV infection
     Dosage: TAB/CAPS (NUMBER OF COURSE WAS 1, PRIOR TO CONCEPTION DURING 1ST TRIMESTER AND ONGOING AT DELIVERY)
     Route: 048
     Dates: start: 20191008
  2. DOVATO [Suspect]
     Active Substance: DOLUTEGRAVIR SODIUM\LAMIVUDINE
     Indication: HIV infection
     Dosage: TAB/CAPS (NUMBER OF COURSE WAS 1, PRIOR TO CONCEPTION DURING 1ST TRIMESTER AND ONGOING AT DELIVERY)
     Route: 048
     Dates: start: 20191008

REACTIONS (2)
  - Abortion spontaneous [Unknown]
  - Maternal exposure during pregnancy [Unknown]

NARRATIVE: CASE EVENT DATE: 20240526
